FAERS Safety Report 7112068-2 (Version None)
Quarter: 2010Q4

REPORT INFORMATION
  Report Type: 
  Country: None (occurrence: None)
  Receive Date: 20101119
  Receipt Date: 20101112
  Transmission Date: 20110411
  Serious: Yes (Death)
  Sender: FDA-Public Use
  Company Number: BR-US-EMD SERONO, INC.-7027679

PATIENT
  Sex: Female

DRUGS (2)
  1. REBIF [Suspect]
     Indication: RELAPSING-REMITTING MULTIPLE SCLEROSIS
     Dates: start: 20030116, end: 20100921
  2. MORPHINE [Concomitant]

REACTIONS (2)
  - ABDOMINAL PAIN [None]
  - RESPIRATORY DISORDER [None]
